FAERS Safety Report 8447079-8 (Version None)
Quarter: 2012Q2

REPORT INFORMATION
  Report Type: 
  Country: None (occurrence: None)
  Receive Date: 20120619
  Receipt Date: 20120614
  Transmission Date: 20120825
  Serious: Yes (Disabling, Other)
  Sender: FDA-Public Use
  Company Number: PHHY2012SV051986

PATIENT
  Age: 89 Year
  Sex: Male

DRUGS (4)
  1. PLAVIX [Concomitant]
  2. SERTRALINE HYDROCHLORIDE [Suspect]
     Indication: NEGATIVE THOUGHTS
     Dosage: 50 MG, QD
     Route: 048
     Dates: start: 20120201
  3. CARVEDILOL [Concomitant]
  4. FUROSEMIDE [Concomitant]

REACTIONS (4)
  - DECREASED ACTIVITY [None]
  - HYPOPHAGIA [None]
  - LACK OF SPONTANEOUS SPEECH [None]
  - DRUG INEFFECTIVE [None]
